FAERS Safety Report 7387497-2 (Version None)
Quarter: 2011Q1

REPORT INFORMATION
  Report Type: 
  Country: None (occurrence: None)
  Receive Date: 20110331
  Receipt Date: 20110321
  Transmission Date: 20110831
  Serious: Yes (Death)
  Sender: FDA-Public Use
  Company Number: US-BAXTER-2011BH007046

PATIENT
  Age: 89 Year
  Sex: Male

DRUGS (1)
  1. DIANEAL [Suspect]
     Indication: PERITONEAL DIALYSIS
     Route: 033
     Dates: end: 20110319

REACTIONS (6)
  - ABDOMINAL PAIN [None]
  - PNEUMONIA [None]
  - SEPSIS [None]
  - PERITONITIS BACTERIAL [None]
  - RESPIRATORY DISTRESS [None]
  - RESPIRATORY FAILURE [None]
